FAERS Safety Report 8024662-5 (Version None)
Quarter: 2011Q4

REPORT INFORMATION
  Report Type: 
  Country: None (occurrence: None)
  Receive Date: 20111130
  Receipt Date: 20110425
  Transmission Date: 20120403
  Serious: Yes (Disabling, Other)
  Sender: FDA-Public Use
  Company Number: PHHY2011US20802

PATIENT
  Age: 55 Year
  Sex: Female
  Weight: 78.9 kg

DRUGS (7)
  1. NORVASC [Concomitant]
  2. TEKTURNA [Suspect]
     Indication: HYPERTENSION
     Dosage: 150 MG, QD, ORAL
     Route: 048
     Dates: start: 20110114, end: 20110119
  3. HYDROCHLOROTHIAZIDE [Concomitant]
  4. ZYRTEC [Concomitant]
  5. XOPENEX [Concomitant]
  6. ZOLOFT [Concomitant]
  7. ADVAIR HFA [Concomitant]

REACTIONS (5)
  - SKIN HYPERPIGMENTATION [None]
  - MASS [None]
  - SCAR [None]
  - PRURITUS [None]
  - RASH GENERALISED [None]
